FAERS Safety Report 6295353-6 (Version None)
Quarter: 2009Q3

REPORT INFORMATION
  Report Type: 
  Country: None (occurrence: None)
  Receive Date: 20090803
  Receipt Date: 20090722
  Transmission Date: 20100115
  Serious: Yes (Hospitalization)
  Sender: FDA-Public Use
  Company Number: FR-SANOFI-SYNTHELABO-A02200901908

PATIENT
  Sex: Female

DRUGS (5)
  1. SEROPLEX [Suspect]
     Indication: DEPRESSION
     Route: 048
     Dates: start: 20090701, end: 20090708
  2. DIANTALVIC [Suspect]
     Indication: DRUG USE FOR UNKNOWN INDICATION
     Dosage: 6 DF
     Route: 048
     Dates: start: 20090701, end: 20090708
  3. TERCIAN [Suspect]
     Indication: DEPRESSION
     Route: 048
     Dates: start: 20090701, end: 20090708
  4. STILNOX [Suspect]
     Indication: DEPRESSION
     Route: 048
     Dates: start: 20090701, end: 20090708
  5. DUPHALAC [Suspect]
     Indication: DRUG USE FOR UNKNOWN INDICATION
     Dosage: 6 DF
     Route: 048
     Dates: start: 20090701, end: 20090708

REACTIONS (3)
  - ATRIOVENTRICULAR BLOCK SECOND DEGREE [None]
  - ELECTROCARDIOGRAM QT PROLONGED [None]
  - MALAISE [None]
